FAERS Safety Report 17543554 (Version 4)
Quarter: 2020Q2

REPORT INFORMATION
  Report Type: Spontaneous
  Country: US (occurrence: US)
  Receive Date: 20200316
  Receipt Date: 20200519
  Transmission Date: 20200713
  Serious: No
  Sender: FDA-Public Use
  Company Number: US-BIOGEN-2020BI00849492

PATIENT
  Sex: Male

DRUGS (1)
  1. TYSABRI [Suspect]
     Active Substance: NATALIZUMAB
     Indication: MULTIPLE SCLEROSIS
     Route: 065
     Dates: start: 20200309

REACTIONS (8)
  - Fatigue [Unknown]
  - Diplopia [Unknown]
  - Migraine [Unknown]
  - Muscular weakness [Unknown]
  - Pain in extremity [Unknown]
  - Tremor [Unknown]
  - Vision blurred [Unknown]
  - Muscle spasms [Unknown]
